FAERS Safety Report 8793526 (Version 3)
Quarter: 2013Q2

REPORT INFORMATION
  Report Type: Spontaneous
  Country: US (occurrence: US)
  Receive Date: 20120917
  Receipt Date: 20130620
  Transmission Date: 20140414
  Serious: Yes (Other)
  Sender: FDA-Public Use
  Company Number: US-ASTRAZENECA-2012SE70739

PATIENT
  Age: 64 Year
  Sex: Female
  Weight: 88 kg

DRUGS (9)
  1. CRESTOR [Suspect]
     Indication: BLOOD CHOLESTEROL ABNORMAL
     Route: 048
     Dates: start: 2000
  2. CRESTOR [Suspect]
     Indication: BLOOD CHOLESTEROL ABNORMAL
     Route: 048
  3. ANTIBIOTIC [Suspect]
     Route: 065
  4. DEXILANT [Concomitant]
     Indication: GASTROOESOPHAGEAL REFLUX DISEASE
  5. METFORMIN [Concomitant]
     Indication: DIABETES MELLITUS
     Dates: start: 2012
  6. FLUDROCOHITSONE [Concomitant]
     Indication: NEUROPATHY PERIPHERAL
  7. FLUDROCOHITSONE [Concomitant]
     Indication: NEUROPATHY PERIPHERAL
  8. CELEBREX [Concomitant]
     Indication: ARTHRITIS
  9. AMLODIPINE BENAZ [Concomitant]
     Indication: BLOOD PRESSURE ABNORMAL
     Dosage: 5/20 MG DAILY

REACTIONS (26)
  - Aneurysm [Unknown]
  - Neoplasm malignant [Unknown]
  - Chest pain [Unknown]
  - Coronary artery occlusion [Unknown]
  - Malignant melanoma [Unknown]
  - Intervertebral disc protrusion [Recovered/Resolved]
  - Spinal column stenosis [Not Recovered/Not Resolved]
  - Glial scar [Unknown]
  - Carpal tunnel syndrome [Unknown]
  - Road traffic accident [Unknown]
  - Visual impairment [Unknown]
  - Cardiac disorder [Unknown]
  - Gait disturbance [Unknown]
  - Balance disorder [Unknown]
  - Neuropathy peripheral [Unknown]
  - Disorientation [Unknown]
  - Body height decreased [Unknown]
  - Adverse event [Unknown]
  - Exostosis [Unknown]
  - Hypertension [Unknown]
  - Back pain [Unknown]
  - Weight decreased [Unknown]
  - Diabetes mellitus [Unknown]
  - Arthralgia [Recovered/Resolved]
  - Drug hypersensitivity [Unknown]
  - Drug dose omission [Unknown]
